FAERS Safety Report 9441077 (Version 3)
Quarter: 2013Q3

REPORT INFORMATION
  Report Type: Report from Study
  Country: GB (occurrence: GB)
  Receive Date: 20130805
  Receipt Date: 20130903
  Transmission Date: 20140515
  Serious: Yes (Death, Hospitalization)
  Sender: FDA-Public Use
  Company Number: GB-ROCHE-1255931

PATIENT
  Sex: Male
  Weight: 80 kg

DRUGS (5)
  1. RANIBIZUMAB [Suspect]
     Indication: PRODUCT USED FOR UNKNOWN INDICATION
     Route: 050
     Dates: start: 20120416
  2. RANIBIZUMAB [Suspect]
     Route: 050
     Dates: start: 20121001
  3. DIPYRIDAMOLE [Concomitant]
     Route: 065
     Dates: start: 2007
  4. ASPIRIN [Concomitant]
     Route: 065
     Dates: start: 2009
  5. SODIUM VALPROATE [Concomitant]
     Route: 065
     Dates: start: 2007

REACTIONS (6)
  - Death [Fatal]
  - Cellulitis [Not Recovered/Not Resolved]
  - Deep vein thrombosis [Not Recovered/Not Resolved]
  - Blood urine present [Recovered/Resolved with Sequelae]
  - Malaise [Not Recovered/Not Resolved]
  - Mobility decreased [Not Recovered/Not Resolved]
